FAERS Safety Report 19746023 (Version 2)
Quarter: 2022Q2

REPORT INFORMATION
  Report Type: Spontaneous
  Country: US (occurrence: None)
  Receive Date: 20210825
  Receipt Date: 20220412
  Transmission Date: 20220720
  Serious: Yes (Other)
  Sender: FDA-Public Use
  Company Number: 2021A687613

PATIENT
  Age: 54 Year
  Sex: Female
  Weight: 66.2 kg

DRUGS (36)
  1. NEXIUM [Suspect]
     Active Substance: ESOMEPRAZOLE MAGNESIUM
     Indication: Gastrooesophageal reflux disease
     Dosage: FOR VARIOUS DATES AND YEARS
     Route: 048
  2. NEXIUM [Suspect]
     Active Substance: ESOMEPRAZOLE MAGNESIUM
     Indication: Gastrooesophageal reflux disease
     Route: 048
     Dates: start: 2002
  3. OMEPRAZOLE [Suspect]
     Active Substance: OMEPRAZOLE
     Indication: Gastrooesophageal reflux disease
     Route: 065
  4. PANTOPRAZOLE [Suspect]
     Active Substance: PANTOPRAZOLE
     Indication: Gastrooesophageal reflux disease
     Route: 065
  5. AZITHROMYCIN [Concomitant]
     Active Substance: AZITHROMYCIN
     Dates: start: 20101202
  6. PREDNISONE [Concomitant]
     Active Substance: PREDNISONE
     Dates: start: 20101202
  7. ALLOPURINOL [Concomitant]
     Active Substance: ALLOPURINOL
     Dates: start: 20190702
  8. BANOPHEN [Concomitant]
     Active Substance: DIPHENHYDRAMINE HYDROCHLORIDE
     Dates: start: 20190910
  9. CETIRIZINE [Concomitant]
     Active Substance: CETIRIZINE HYDROCHLORIDE
     Dates: start: 20190910
  10. ACETAMINOPHEN [Concomitant]
     Active Substance: ACETAMINOPHEN
     Dates: start: 20190808
  11. ESCITALOPRAM [Concomitant]
     Active Substance: ESCITALOPRAM OXALATE
     Dates: start: 20190910
  12. GABAPENTIN [Concomitant]
     Active Substance: GABAPENTIN
     Dates: start: 20190913
  13. ESTRADIOL [Concomitant]
     Active Substance: ESTRADIOL
     Dates: start: 20190913
  14. HYDROXYZINE [Concomitant]
     Active Substance: HYDROXYZINE HYDROCHLORIDE
     Dates: start: 20190714
  15. IBUPROFEN [Concomitant]
     Active Substance: IBUPROFEN
     Dates: start: 20190714
  16. NAPROXEN [Concomitant]
     Active Substance: NAPROXEN
     Dates: start: 20190405
  17. OXYCODONE [Concomitant]
     Active Substance: OXYCODONE
     Dates: start: 20190817
  18. MICONAZOLE [Concomitant]
     Active Substance: MICONAZOLE
     Dates: start: 20190509
  19. SIMVASTATIN [Concomitant]
     Active Substance: SIMVASTATIN
     Dates: start: 20190903
  20. VITAMIN D [Concomitant]
     Active Substance: VITAMIN D NOS
     Dates: start: 20190713
  21. RANITIDINE [Concomitant]
     Active Substance: RANITIDINE
     Dates: start: 20190913
  22. PENICILLIN [Concomitant]
     Active Substance: PENICILLIN
     Dates: start: 20190913
  23. FLUTICASONE [Concomitant]
     Active Substance: FLUTICASONE
     Dates: start: 20181004
  24. ESCIN/LEVOTHYROXINE [Concomitant]
     Dates: start: 20190806
  25. ZOLPIDEM [Concomitant]
     Active Substance: ZOLPIDEM TARTRATE
     Dates: start: 20190806
  26. CYCLOBENZAPRINE [Concomitant]
     Active Substance: CYCLOBENZAPRINE
     Dates: start: 20190806
  27. FLOVENT [Concomitant]
     Active Substance: FLUTICASONE PROPIONATE
     Dates: start: 20161223
  28. FERROUS SULFATE [Concomitant]
     Active Substance: FERROUS SULFATE
     Dates: start: 20190520
  29. FEXOFENADINE [Concomitant]
     Active Substance: FEXOFENADINE HYDROCHLORIDE
     Dates: start: 20190326
  30. MELOXICAM [Concomitant]
     Active Substance: MELOXICAM
     Dates: start: 20190404
  31. LOPERAMIDE [Concomitant]
     Active Substance: LOPERAMIDE
  32. CYNOCOBALAMIN [Concomitant]
     Dates: start: 20190724
  33. BENZONATATE [Concomitant]
     Active Substance: BENZONATATE
     Dates: start: 20191216
  34. ALPRAZOLAM [Concomitant]
     Active Substance: ALPRAZOLAM
     Dates: start: 20130117
  35. HYDROCODONE/PARACETAMOL/ETHANOL [Concomitant]
     Dates: start: 20160824
  36. TRAMADOL [Concomitant]
     Active Substance: TRAMADOL
     Dates: start: 20180721

REACTIONS (3)
  - Chronic kidney disease [Not Recovered/Not Resolved]
  - Renal failure [Unknown]
  - Rebound acid hypersecretion [Unknown]

NARRATIVE: CASE EVENT DATE: 20100101
